FAERS Safety Report 9487316 (Version 1)
Quarter: 2013Q3

REPORT INFORMATION
  Report Type: Spontaneous
  Country: DZ (occurrence: DZ)
  Receive Date: 20130829
  Receipt Date: 20130829
  Transmission Date: 20140515
  Serious: Yes (Hospitalization)
  Sender: FDA-Public Use
  Company Number: DZ-ROCHE-1265515

PATIENT
  Age: 29 Year
  Sex: Female

DRUGS (3)
  1. ACTEMRA [Suspect]
     Indication: RHEUMATOID ARTHRITIS
     Route: 042
  2. ACTEMRA [Suspect]
     Dosage: FIFTH CYCLE IN JUL/2013
     Route: 042
  3. ACTEMRA [Suspect]
     Dosage: SIXTH CYCLE ON 21/AUG/2013
     Route: 042

REACTIONS (6)
  - Blood pressure decreased [Recovered/Resolved]
  - Neurogenic shock [Recovered/Resolved]
  - Loss of consciousness [Recovered/Resolved]
  - Arthralgia [Recovered/Resolved]
  - Joint warmth [Recovered/Resolved]
  - Joint swelling [Recovered/Resolved]
